FAERS Safety Report 17878119 (Version 2)
Quarter: 2020Q2

REPORT INFORMATION
  Report Type: Spontaneous
  Country: AR (occurrence: AR)
  Receive Date: 20200609
  Receipt Date: 20200618
  Transmission Date: 20200714
  Serious: Yes (Hospitalization)
  Sender: FDA-Public Use
  Company Number: AR-AMGEN-ARGSP2020089315

PATIENT
  Age: 74 Year
  Sex: Female

DRUGS (4)
  1. DELTISONA B [METHYLPREDNISOLONE] [Concomitant]
     Dosage: 4 MG, DAILY
  2. SARVAL [Concomitant]
     Dosage: UNK
  3. T4 [Concomitant]
     Active Substance: LEVOTHYROXINE
     Dosage: 50 MG
  4. ENBREL [Suspect]
     Active Substance: ETANERCEPT
     Indication: RHEUMATOID ARTHRITIS
     Dosage: 50 MG, WEEKLY
     Route: 065
     Dates: start: 20200110, end: 202003

REACTIONS (2)
  - Decreased immune responsiveness [Recovered/Resolved]
  - Hypotension [Recovered/Resolved]

NARRATIVE: CASE EVENT DATE: 202003
